FAERS Safety Report 14106127 (Version 2)
Quarter: 2017Q4

REPORT INFORMATION
  Report Type: Report from Study
  Country: US (occurrence: US)
  Receive Date: 20171019
  Receipt Date: 20171024
  Transmission Date: 20180321
  Serious: Yes (Hospitalization, Other)
  Sender: FDA-Public Use
  Company Number: US-ASTRAZENECA-2017SF05304

PATIENT
  Age: 23 Month
  Sex: Male
  Weight: 5.7 kg

DRUGS (1)
  1. SYNAGIS [Suspect]
     Active Substance: PALIVIZUMAB
     Indication: RESPIRATORY SYNCYTIAL VIRUS INFECTION
     Dosage: MONTHLY
     Route: 030
     Dates: start: 201411, end: 201501

REACTIONS (9)
  - Respiratory syncytial virus infection [Unknown]
  - Deafness [Unknown]
  - Inability to afford medication [Unknown]
  - Pneumothorax [Unknown]
  - Gait inability [Unknown]
  - Blindness [Unknown]
  - Pneumonia [Unknown]
  - Pneumonia haemophilus [Unknown]
  - Mutism [Unknown]

NARRATIVE: CASE EVENT DATE: 201604
